FAERS Safety Report 16609063 (Version 1)
Quarter: 2019Q3

REPORT INFORMATION
  Report Type: Spontaneous
  Country: US (occurrence: US)
  Receive Date: 20190720
  Receipt Date: 20190720
  Transmission Date: 20191004
  Serious: Yes (Disabling)
  Sender: FDA-Public Use
  Company Number: None

PATIENT
  Age: 61 Year
  Sex: Female
  Weight: 58.5 kg

DRUGS (2)
  1. CLONAZEPAM. [Suspect]
     Active Substance: CLONAZEPAM
     Indication: VERTIGO
     Dosage: ?          QUANTITY:90 TABLET(S);?
     Route: 048
     Dates: start: 20190717, end: 20190719
  2. CLONAZEPAM. [Suspect]
     Active Substance: CLONAZEPAM
     Indication: NEUROPATHY PERIPHERAL
     Dosage: ?          QUANTITY:90 TABLET(S);?
     Route: 048
     Dates: start: 20190717, end: 20190719

REACTIONS (5)
  - Vertigo [None]
  - Therapeutic product effect incomplete [None]
  - Nausea [None]
  - Product substitution issue [None]
  - Nystagmus [None]

NARRATIVE: CASE EVENT DATE: 20190719
